FAERS Safety Report 8911122 (Version 1)
Quarter: 2012Q4

REPORT INFORMATION
  Report Type: 
  Country: AR (occurrence: AR)
  Receive Date: 20121116
  Receipt Date: 20121116
  Transmission Date: 20130627
  Serious: Yes (Other)
  Sender: FDA-Public Use
  Company Number: AR-AMGEN-ARGSP2012072436

PATIENT
  Age: 44 Year
  Sex: Female

DRUGS (2)
  1. ENBREL [Suspect]
     Indication: RHEUMATOID ARTHRITIS
     Dosage: 25 mg, 2x/week
     Route: 058
     Dates: start: 20050921, end: 201207
  2. IM 75 MONTPELLIER [Concomitant]
     Dosage: UNK

REACTIONS (4)
  - Arthritis [Recovered/Resolved]
  - Decreased immune responsiveness [Unknown]
  - White blood cell count decreased [Recovering/Resolving]
  - Infection [Unknown]
